FAERS Safety Report 18687624 (Version 1)
Quarter: 2020Q4

REPORT INFORMATION
  Report Type: Spontaneous
  Country: US (occurrence: US)
  Receive Date: 20201230
  Receipt Date: 20201230
  Transmission Date: 20210114
  Serious: No
  Sender: FDA-Public Use
  Company Number: None

PATIENT
  Age: 85 Year
  Sex: Female

DRUGS (1)
  1. BAMLANIVIMAB. [Suspect]
     Active Substance: BAMLANIVIMAB
     Dates: start: 20201222, end: 20201223

REACTIONS (4)
  - Diarrhoea [None]
  - Lethargy [None]
  - Body temperature increased [None]
  - Oxygen saturation decreased [None]

NARRATIVE: CASE EVENT DATE: 20201226
